FAERS Safety Report 6376407-2 (Version None)
Quarter: 2009Q3

REPORT INFORMATION
  Report Type: 
  Country: None (occurrence: None)
  Receive Date: 20090925
  Receipt Date: 20090923
  Transmission Date: 20100115
  Serious: Yes (Hospitalization)
  Sender: FDA-Public Use
  Company Number: US-WYE-H10234209

PATIENT
  Sex: Female

DRUGS (13)
  1. RAPAMUNE [Suspect]
     Indication: PROPHYLAXIS AGAINST TRANSPLANT REJECTION
     Route: 048
     Dates: start: 20081010, end: 20090717
  2. RAPAMUNE [Suspect]
     Route: 048
     Dates: start: 20090718, end: 20090721
  3. RAPAMUNE [Suspect]
     Route: 048
     Dates: start: 20090722, end: 20090724
  4. RAPAMUNE [Suspect]
     Route: 048
     Dates: start: 20090725, end: 20090810
  5. LIPITOR [Concomitant]
     Indication: HYPERLIPIDAEMIA
     Route: 048
     Dates: start: 20081205
  6. CELLCEPT [Concomitant]
     Indication: PROPHYLAXIS AGAINST TRANSPLANT REJECTION
     Route: 048
     Dates: start: 20081031
  7. PRILOSEC [Concomitant]
     Indication: PROPHYLAXIS AGAINST GASTROINTESTINAL ULCER
     Route: 048
     Dates: start: 20090807
  8. RAMIPRIL, TEST ARTICLE IN SIROLIMUS STUDY [Suspect]
     Indication: PROTEINURIA
     Route: 048
     Dates: start: 20080911, end: 20090812
  9. PREDNISONE [Concomitant]
     Indication: PROPHYLAXIS AGAINST TRANSPLANT REJECTION
     Route: 048
     Dates: start: 20081112, end: 20090716
  10. PREDNISONE [Concomitant]
     Route: 048
     Dates: start: 20090717, end: 20090723
  11. PREDNISONE [Concomitant]
     Route: 048
     Dates: start: 20090724, end: 20090725
  12. PREDNISONE [Concomitant]
     Route: 048
     Dates: start: 20090726, end: 20090726
  13. PREDNISONE [Concomitant]
     Route: 048
     Dates: start: 20090727

REACTIONS (1)
  - PNEUMONITIS [None]
